APPROVED DRUG PRODUCT: FREAMINE III 8.5% W/ ELECTROLYTES
Active Ingredient: AMINO ACIDS; MAGNESIUM ACETATE; PHOSPHORIC ACID; POTASSIUM ACETATE; POTASSIUM CHLORIDE; SODIUM ACETATE
Strength: 8.5%;110MG/100ML;230MG/100ML;10MG/100ML;440MG/100ML;690MG/100ML
Dosage Form/Route: INJECTABLE;INJECTION
Application: N016822 | Product #007
Applicant: B BRAUN MEDICAL INC
Approved: Jul 1, 1988 | RLD: No | RS: No | Type: DISCN